FAERS Safety Report 4548468-4 (Version None)
Quarter: 2004Q4

REPORT INFORMATION
  Report Type: 
  Country: None (occurrence: None)
  Receive Date: 20041227
  Receipt Date: 20041029
  Transmission Date: 20050328
  Serious: Yes (Hospitalization)
  Sender: FDA-Public Use
  Company Number: 04P-163-0279505-00

PATIENT
  Age: 59 Year
  Sex: Female
  Weight: 136 kg

DRUGS (3)
  1. HUMIRA [Suspect]
     Indication: RHEUMATOID ARTHRITIS
     Dosage: 40 MG, 1 IN 2 WK, SUBCUTANEOUS
     Route: 058
     Dates: start: 20040901, end: 20041028
  2. METHOTREXATE SODIUM [Concomitant]
     Indication: RHEUMATOID ARTHRITIS
     Dosage: 1 IN 1 WK, INJECTION
     Dates: start: 19990101, end: 20041001
  3. ANTIBIOTICS [Concomitant]

REACTIONS (3)
  - FEELING ABNORMAL [None]
  - GASTROENTERITIS VIRAL [None]
  - RASH [None]
